APPROVED DRUG PRODUCT: ACYCLOVIR
Active Ingredient: ACYCLOVIR
Strength: 200MG
Dosage Form/Route: CAPSULE;ORAL
Application: A074727 | Product #001
Applicant: AUROBINDO PHARMA USA INC
Approved: Apr 22, 1997 | RLD: No | RS: No | Type: DISCN